FAERS Safety Report 5742063-7 (Version None)
Quarter: 2008Q2

REPORT INFORMATION
  Report Type: 
  Country: None (occurrence: None)
  Receive Date: 20080519
  Receipt Date: 20080310
  Transmission Date: 20081010
  Serious: Yes (Other)
  Sender: FDA-Public Use
  Company Number: TW-MERCK-0803TWN00003

PATIENT
  Sex: Female

DRUGS (1)
  1. FOSAMAX PLUS D [Suspect]
     Route: 048
     Dates: start: 20070201, end: 20080311

REACTIONS (3)
  - INSOMNIA [None]
  - MUSCULOSKELETAL PAIN [None]
  - OSTEONECROSIS [None]
